FAERS Safety Report 17469494 (Version 1)
Quarter: 2020Q1

REPORT INFORMATION
  Report Type: Spontaneous
  Country: PL (occurrence: PL)
  Receive Date: 20200227
  Receipt Date: 20200227
  Transmission Date: 20200409
  Serious: Yes (Other)
  Sender: FDA-Public Use
  Company Number: PL-MYLANLABS-2020M1021745

PATIENT
  Age: 9 Year
  Sex: Male

DRUGS (5)
  1. DIMETINDENE [Suspect]
     Active Substance: DIMETHINDENE
     Indication: PRODUCT USED FOR UNKNOWN INDICATION
     Dosage: 15 DROP, 3X PER DAY
     Route: 048
  2. AZELASTINE. [Suspect]
     Active Substance: AZELASTINE HYDROCHLORIDE
     Indication: PRODUCT USED FOR UNKNOWN INDICATION
     Dosage: UNK UNK, 3X PER DAY
  3. DEXAMETHASONE. [Concomitant]
     Active Substance: DEXAMETHASONE
     Indication: CONJUNCTIVAL DISORDER
     Dosage: UNK UNK, 4X PER DAY, HIGHER DOSE THAN PREVIOUSLY
  4. DEXAMETHASONE. [Concomitant]
     Active Substance: DEXAMETHASONE
     Dosage: 8X PER DAY
     Route: 061
  5. MOXIFLOXACIN. [Suspect]
     Active Substance: MOXIFLOXACIN
     Indication: PRODUCT USED FOR UNKNOWN INDICATION
     Dosage: 5X PER DAY

REACTIONS (3)
  - Noninfective conjunctivitis [Recovering/Resolving]
  - Vernal keratoconjunctivitis [Recovering/Resolving]
  - Conjunctival hyperaemia [Recovering/Resolving]
